FAERS Safety Report 21240536 (Version 1)
Quarter: 2022Q3

REPORT INFORMATION
  Report Type: Spontaneous
  Country: MT (occurrence: MT)
  Receive Date: 20220822
  Receipt Date: 20220822
  Transmission Date: 20221027
  Serious: Yes (Hospitalization, Other)
  Sender: FDA-Public Use
  Company Number: MT-SUN PHARMACEUTICAL INDUSTRIES LTD-2022R1-348188

PATIENT
  Age: 30 Year
  Sex: Female

DRUGS (1)
  1. ASPIRIN [Suspect]
     Active Substance: ASPIRIN
     Indication: Prophylaxis
     Dosage: LOW DOSE
     Route: 065

REACTIONS (9)
  - Haemolytic anaemia [Unknown]
  - Hyperkalaemia [Unknown]
  - Premature delivery [Unknown]
  - Abortion induced [Unknown]
  - Exposure during pregnancy [Unknown]
  - Haemorrhage [Unknown]
  - Blindness [Unknown]
  - Glomerular filtration rate decreased [Unknown]
  - Condition aggravated [Unknown]
